FAERS Safety Report 8316383-6 (Version None)
Quarter: 2012Q2

REPORT INFORMATION
  Report Type: 
  Country: None (occurrence: None)
  Receive Date: 20120427
  Receipt Date: 20120426
  Transmission Date: 20120825
  Serious: Yes (Other)
  Sender: FDA-Public Use
  Company Number: US-PFIZER INC-2012104146

PATIENT
  Age: 66 Year
  Sex: Female

DRUGS (4)
  1. CHANTIX [Suspect]
     Dosage: UNK
     Dates: end: 20120301
  2. HYDROCHLOROTHIAZIDE [Concomitant]
     Indication: FLUID RETENTION
     Dosage: UNK
  3. CHANTIX [Suspect]
     Indication: SMOKING CESSATION THERAPY
     Dosage: UNK
  4. CHANTIX [Suspect]
     Dosage: 0.5 MG, DAILY
     Dates: start: 20110901

REACTIONS (3)
  - ANXIETY [None]
  - ABNORMAL DREAMS [None]
  - DEPRESSION [None]
